FAERS Safety Report 5790376-5 (Version None)
Quarter: 2008Q2

REPORT INFORMATION
  Report Type: 
  Country: None (occurrence: None)
  Receive Date: 20080626
  Receipt Date: 20080507
  Transmission Date: 20081010
  Serious: No
  Sender: FDA-Public Use
  Company Number: A0724954A

PATIENT
  Age: 66 Year
  Sex: Female

DRUGS (3)
  1. ALLI [Suspect]
  2. ALLI [Suspect]
  3. UNSPECIFIED MEDICATION [Suspect]

REACTIONS (5)
  - CONSTIPATION [None]
  - DRUG INEFFECTIVE [None]
  - DRUG INTERACTION [None]
  - WEIGHT FLUCTUATION [None]
  - WEIGHT INCREASED [None]
